FAERS Safety Report 8823676 (Version 1)
Quarter: 2012Q4

REPORT INFORMATION
  Report Type: 
  Country: US (occurrence: US)
  Receive Date: 20121003
  Receipt Date: 20121003
  Transmission Date: 20130627
  Serious: No
  Sender: FDA-Public Use
  Company Number: US-VERTEX PHARMACEUTICAL INC.-2012-021147

PATIENT
  Age: 38 Year
  Sex: Male
  Weight: 88 kg

DRUGS (5)
  1. INCIVEK [Suspect]
     Indication: HEPATITIS C
     Dosage: 750 mg, tid
     Route: 048
     Dates: start: 20120908
  2. RIBAVIRIN [Suspect]
     Indication: HEPATITIS C
     Dosage: 600 mg, bid
     Route: 048
     Dates: start: 20120908
  3. PEGINTRON                          /01543001/ [Suspect]
     Indication: HEPATITIS C
     Dosage: 150 ?g, UNK
     Route: 058
     Dates: start: 20120908
  4. TYLENOL EXTRA STRENGTH [Concomitant]
     Indication: PYREXIA
     Dosage: 1000 mg, prn
     Route: 048
  5. TYLENOL EXTRA STRENGTH [Concomitant]
     Indication: PAIN

REACTIONS (2)
  - Pyrexia [Recovered/Resolved]
  - Night sweats [Recovered/Resolved]
